FAERS Safety Report 23834864 (Version 2)
Quarter: 2024Q2

REPORT INFORMATION
  Report Type: Report from Study
  Country: US (occurrence: US)
  Receive Date: 20240509
  Receipt Date: 20240519
  Transmission Date: 20240715
  Serious: Yes (Other)
  Sender: FDA-Public Use
  Company Number: US-JNJFOC-20240503184

PATIENT
  Age: 59 Year
  Sex: Female

DRUGS (5)
  1. SPRAVATO [Suspect]
     Active Substance: ESKETAMINE
     Indication: Depression
     Dosage: 56 MG, TOTAL OF 1 DOSE
     Dates: start: 20231215, end: 20231215
  2. SPRAVATO [Suspect]
     Active Substance: ESKETAMINE
     Dosage: 84 MG, TOTAL OF 8 DOSES
     Dates: start: 20231219, end: 20240126
  3. SPRAVATO [Suspect]
     Active Substance: ESKETAMINE
     Dosage: 56 MG, TOTAL OF 1 DOSES
     Dates: start: 20240130, end: 20240130
  4. SPRAVATO [Suspect]
     Active Substance: ESKETAMINE
     Dosage: 84 MG, TOTAL OF 12 DOSES
     Dates: start: 20240209, end: 20240419
  5. SPRAVATO [Suspect]
     Active Substance: ESKETAMINE
     Dosage: 84 MG, TOTAL OF 1 DOSES
     Dates: start: 20240426, end: 20240426

REACTIONS (1)
  - Hypertensive crisis [Unknown]

NARRATIVE: CASE EVENT DATE: 20240426
